FAERS Safety Report 7110707-3 (Version None)
Quarter: 2010Q4

REPORT INFORMATION
  Report Type: 
  Country: None (occurrence: None)
  Receive Date: 20101118
  Receipt Date: 20101115
  Transmission Date: 20110411
  Serious: Yes (Other)
  Sender: FDA-Public Use
  Company Number: A0892548A

PATIENT
  Age: 72 Year
  Sex: Male

DRUGS (2)
  1. SORIATANE [Suspect]
     Indication: PSORIASIS
     Dosage: 25MG PER DAY
     Route: 048
  2. ALCOHOL [Concomitant]
     Dates: start: 20101114

REACTIONS (2)
  - FALL [None]
  - LOSS OF CONSCIOUSNESS [None]
